FAERS Safety Report 6607849-5 (Version None)
Quarter: 2010Q1

REPORT INFORMATION
  Report Type: 
  Country: None (occurrence: None)
  Receive Date: 20100222
  Receipt Date: 20100205
  Transmission Date: 20100710
  Serious: Yes (Hospitalization, Other)
  Sender: FDA-Public Use
  Company Number: A-NJ2008-21929

PATIENT
  Age: 78 Year
  Sex: Female
  Weight: 81.2 kg

DRUGS (21)
  1. TRACLEER [Suspect]
     Indication: PULMONARY ARTERIAL HYPERTENSION
     Dosage: 125 MG, BID, ORAL; 62.5 MG, BID, ORAL; 62.5 MG, BID,
     Route: 048
     Dates: start: 20080819, end: 20080918
  2. TRACLEER [Suspect]
     Indication: PULMONARY ARTERIAL HYPERTENSION
     Dosage: 125 MG, BID, ORAL; 62.5 MG, BID, ORAL; 62.5 MG, BID,
     Route: 048
     Dates: start: 20080919, end: 20081111
  3. TRACLEER [Suspect]
     Indication: PULMONARY ARTERIAL HYPERTENSION
     Dosage: 125 MG, BID, ORAL; 62.5 MG, BID, ORAL; 62.5 MG, BID,
     Route: 048
     Dates: end: 20100101
  4. TRACLEER [Suspect]
     Indication: PULMONARY ARTERIAL HYPERTENSION
     Dosage: 125 MG, BID, ORAL; 62.5 MG, BID, ORAL; 62.5 MG, BID,
     Route: 048
     Dates: start: 20100118
  5. TRACLEER [Suspect]
  6. REVATIO [Concomitant]
  7. REMODULIN (TREPROSTINIL) [Concomitant]
  8. METFORMIN HCL [Concomitant]
  9. LIPITOR [Concomitant]
  10. GLIPIZIDE [Concomitant]
  11. SYNTHROID [Concomitant]
  12. ASPIRIN [Concomitant]
  13. ATIVAN [Concomitant]
  14. LANTUS [Concomitant]
  15. LASIX [Concomitant]
  16. MICRO K (POTASSIUM CHLORIDE) [Concomitant]
  17. VITAMIN B12 NOS (VITAMIN B12 NOS) [Concomitant]
  18. PREDNISONE TAB [Concomitant]
  19. ALBUTEROL [Concomitant]
  20. SPIRIVA [Concomitant]
  21. CYMBALTA [Concomitant]

REACTIONS (8)
  - BLOOD ALKALINE PHOSPHATASE INCREASED [None]
  - DISEASE PROGRESSION [None]
  - FLUID OVERLOAD [None]
  - OEDEMA PERIPHERAL [None]
  - PULMONARY ARTERIAL HYPERTENSION [None]
  - RESPIRATORY FAILURE [None]
  - RIGHT VENTRICULAR FAILURE [None]
  - SYNCOPE [None]
